FAERS Safety Report 8347507-2 (Version None)
Quarter: 2012Q2

REPORT INFORMATION
  Report Type: 
  Country: None (occurrence: None)
  Receive Date: 20120509
  Receipt Date: 20120430
  Transmission Date: 20120825
  Serious: Yes (Other)
  Sender: FDA-Public Use
  Company Number: US-ASTRAZENECA-2012SE23797

PATIENT
  Sex: Female

DRUGS (3)
  1. CRESTOR [Suspect]
     Route: 048
  2. PULMICORT FLEXHALER [Concomitant]
  3. NEXIUM [Suspect]
     Route: 048

REACTIONS (5)
  - LUNG DISORDER [None]
  - BLOOD CHOLESTEROL INCREASED [None]
  - ASTHMA [None]
  - GASTROOESOPHAGEAL REFLUX DISEASE [None]
  - ROAD TRAFFIC ACCIDENT [None]
